FAERS Safety Report 7734071-1 (Version None)
Quarter: 2011Q3

REPORT INFORMATION
  Report Type: 
  Country: None (occurrence: None)
  Receive Date: 20110907
  Receipt Date: 20110902
  Transmission Date: 20111222
  Serious: Yes (Death)
  Sender: FDA-Public Use
  Company Number: NZ-ROCHE-785171

PATIENT
  Sex: Male

DRUGS (3)
  1. PREDNISONE [Suspect]
     Route: 065
  2. DILTIAZEM [Concomitant]
     Indication: HYPERTENSION
     Route: 048
  3. ACTEMRA [Suspect]
     Route: 042
     Dates: start: 20101203, end: 20110329

REACTIONS (1)
  - PANCREATITIS [None]
